FAERS Safety Report 6153071-9 (Version None)
Quarter: 2009Q2

REPORT INFORMATION
  Report Type: 
  Country: None (occurrence: None)
  Receive Date: 20090413
  Receipt Date: 20090331
  Transmission Date: 20091009
  Serious: No
  Sender: FDA-Public Use
  Company Number: JP-ELI_LILLY_AND_COMPANY-JP200904000895

PATIENT
  Age: 70 Year
  Sex: Male
  Weight: 39 kg

DRUGS (6)
  1. ZYPREXA [Suspect]
     Indication: EPILEPTIC PSYCHOSIS
     Dosage: 5 MG, DAILY (1/D)
     Route: 048
     Dates: start: 20090116, end: 20090129
  2. ZYPREXA [Suspect]
     Dosage: 10 MG, DAILY (1/D)
     Route: 048
     Dates: start: 20090130, end: 20090316
  3. CARBAMAZEPINE [Concomitant]
  4. FAMOTIDINE [Concomitant]
  5. PURSENNID [Concomitant]
  6. MAGMITT [Concomitant]

REACTIONS (2)
  - HAEMORRHAGE SUBCUTANEOUS [None]
  - HAEMORRHAGIC DIATHESIS [None]
